FAERS Safety Report 23807858 (Version 2)
Quarter: 2025Q1

REPORT INFORMATION
  Report Type: Spontaneous
  Country: US (occurrence: US)
  Receive Date: 20240502
  Receipt Date: 20250325
  Transmission Date: 20250409
  Serious: No
  Sender: VIIV
  Company Number: US-VIIV HEALTHCARE LIMITED-US2024051832

PATIENT
  Sex: Male

DRUGS (1)
  1. DOVATO [Suspect]
     Active Substance: DOLUTEGRAVIR SODIUM\LAMIVUDINE
     Indication: HIV carrier
     Dosage: UNK UNK, QD, 50 MG/1, 300 MG/1
     Route: 048

REACTIONS (3)
  - Multiple allergies [Recovering/Resolving]
  - Aphonia [Recovering/Resolving]
  - Product dose omission issue [Unknown]
